FAERS Safety Report 6910144-8 (Version None)
Quarter: 2010Q3

REPORT INFORMATION
  Report Type: 
  Country: None (occurrence: None)
  Receive Date: 20100806
  Receipt Date: 20100727
  Transmission Date: 20110219
  Serious: Yes (Hospitalization, Other)
  Sender: FDA-Public Use
  Company Number: US-ELI_LILLY_AND_COMPANY-US201002003771

PATIENT
  Sex: Female
  Weight: 142.86 kg

DRUGS (4)
  1. BYETTA [Suspect]
     Dosage: UNK, UNKNOWN
     Route: 065
     Dates: start: 20080101, end: 20080701
  2. INSULIN [Concomitant]
     Indication: DIABETES MELLITUS
  3. DIURETICS [Concomitant]
     Indication: CARDIAC FAILURE CONGESTIVE
  4. TYLENOL                                 /SCH/ [Concomitant]
     Indication: HEADACHE

REACTIONS (5)
  - CLOSTRIDIAL INFECTION [None]
  - GASTRIC DISORDER [None]
  - OFF LABEL USE [None]
  - PANCREATITIS [None]
  - RENAL FAILURE [None]
